FAERS Safety Report 9386067 (Version 2)
Quarter: 2013Q3

REPORT INFORMATION
  Report Type: Spontaneous
  Country: US (occurrence: US)
  Receive Date: 20130706
  Receipt Date: 20130708
  Transmission Date: 20140515
  Serious: Yes (Hospitalization)
  Sender: FDA-Public Use
  Company Number: US-B.I. PHARMACEUTICALS,INC./RIDGEFIELD-2013-BI-18811BP

PATIENT
  Age: 68 Year
  Sex: Female

DRUGS (5)
  1. SPIRIVA [Suspect]
     Indication: CHRONIC OBSTRUCTIVE PULMONARY DISEASE
     Dosage: 18 MCG
     Route: 055
     Dates: start: 201301
  2. THEODUR [Concomitant]
     Route: 048
  3. TYVASO [Concomitant]
     Route: 055
  4. LETAIRIS [Concomitant]
     Route: 048
  5. REVATIO [Concomitant]
     Route: 048

REACTIONS (2)
  - Dyspnoea [Recovered/Resolved]
  - Pulmonary oedema [Recovered/Resolved]
